FAERS Safety Report 6127818-1 (Version None)
Quarter: 2009Q1

REPORT INFORMATION
  Report Type: 
  Country: None (occurrence: None)
  Receive Date: 20090323
  Receipt Date: 20090312
  Transmission Date: 20090719
  Serious: Yes (Other)
  Sender: FDA-Public Use
  Company Number: US-KINGPHARMUSA00001-K200900282

PATIENT
  Age: 15 Year
  Sex: Female

DRUGS (1)
  1. FLECTOR [Suspect]
     Indication: ARTHRALGIA
     Dosage: 2 PATCHES, PRN
     Route: 061
     Dates: start: 20090311, end: 20090312

REACTIONS (3)
  - FEELING ABNORMAL [None]
  - HYPOGLYCAEMIA [None]
  - MUSCLE SPASMS [None]
